FAERS Safety Report 9170495 (Version 1)
Quarter: 2013Q1

REPORT INFORMATION
  Report Type: Spontaneous
  Country: GB (occurrence: None)
  Receive Date: 20130311
  Receipt Date: 20130311
  Transmission Date: 20140127
  Serious: Yes (Other)
  Sender: FDA-Public Use
  Company Number: 2013-03691

PATIENT
  Age: 52 Year
  Sex: Male

DRUGS (3)
  1. DICLOFENAC [Suspect]
     Indication: PRODUCT USED FOR UNKNOWN INDICATION
  2. HUMIRA [Suspect]
     Indication: ARTHRITIS
     Dosage: 80 MG, 1 EVERY 2 WEEKS
     Route: 058
     Dates: start: 20121024
  3. HUMIRA [Suspect]
     Indication: PSORIASIS
     Dosage: 40 MG, 1 EVERY 2 WEEKS
     Route: 058
     Dates: start: 20120216

REACTIONS (8)
  - Hypersensitivity [None]
  - Nephrolithiasis [None]
  - Pruritus generalised [None]
  - Cyanosis [None]
  - Blood pressure decreased [None]
  - Renal pain [None]
  - Dyspnoea [None]
  - Asthenia [None]
